FAERS Safety Report 7466080-4 (Version None)
Quarter: 2011Q2

REPORT INFORMATION
  Report Type: 
  Country: None (occurrence: None)
  Receive Date: 20110505
  Receipt Date: 20110505
  Transmission Date: 20111010
  Serious: Yes (Life-Threatening)
  Sender: FDA-Public Use
  Company Number: None

PATIENT
  Age: 26 Year
  Sex: Male
  Weight: 79.8331 kg

DRUGS (1)
  1. TRILEPTAL [Suspect]
     Indication: SCHIZOPHRENIA
     Dosage: 900MG DAILY PO
     Dates: start: 20110101, end: 20110322

REACTIONS (1)
  - HYPONATRAEMIA [None]
